FAERS Safety Report 9737003 (Version 1)
Quarter: 2013Q4

REPORT INFORMATION
  Report Type: Spontaneous
  Country: US (occurrence: US)
  Receive Date: 20131206
  Receipt Date: 20131206
  Transmission Date: 20140711
  Serious: No
  Sender: FDA-Public Use
  Company Number: US-GILEAD-2009-0023140

PATIENT
  Age: 71 Year
  Sex: Female
  Weight: 67.13 kg

DRUGS (12)
  1. LETAIRIS [Suspect]
     Indication: PULMONARY ARTERIAL HYPERTENSION
     Route: 048
     Dates: start: 20090615
  2. REVATIO [Concomitant]
  3. LASIX [Concomitant]
  4. SPIRONOLACTONE [Concomitant]
  5. PRAVASTATIN [Concomitant]
  6. SPIRIVA [Concomitant]
  7. PULMICORT [Concomitant]
  8. BROVANA [Concomitant]
  9. PREDNISONE [Concomitant]
  10. ZYRTEC [Concomitant]
  11. LEXAPRO [Concomitant]
  12. VITAMIN D [Concomitant]

REACTIONS (2)
  - Oedema peripheral [Recovering/Resolving]
  - Nasal congestion [Recovering/Resolving]
